FAERS Safety Report 21681879 (Version 1)
Quarter: 2022Q4

REPORT INFORMATION
  Report Type: Spontaneous
  Country: GB (occurrence: GB)
  Receive Date: 20221205
  Receipt Date: 20221205
  Transmission Date: 20230113
  Serious: Yes (Hospitalization, Other)
  Sender: FDA-Public Use
  Company Number: None

PATIENT
  Age: 88 Year

DRUGS (17)
  1. OMEPRAZOLE [Suspect]
     Active Substance: OMEPRAZOLE
     Indication: Product used for unknown indication
     Dosage: ONE TO BE TAKEN EACH DAY BEFORE EATING AND DRINKING, IF NEEDED
  2. AMOXICILLIN [Concomitant]
     Active Substance: AMOXICILLIN
     Indication: Product used for unknown indication
  3. ARTIFICIAL SALIVA [Concomitant]
     Indication: Product used for unknown indication
     Dosage: GLANDOSANE SYNTHETIC SALIVA SPRAY NATURAL. TO BE USED WHEN REQUIRED
  4. CHOLECALCIFEROL [Concomitant]
     Active Substance: CHOLECALCIFEROL
     Indication: Product used for unknown indication
     Dosage: COLECALCIFEROL 400UNIT / CALCIUM CARBONATE. PREFERABLY ONE TABLET EACH MORNING AND EVENING
  5. DOCUSATE [Concomitant]
     Active Substance: DOCUSATE
     Indication: Constipation
     Dosage: TAKE TWO TWICE DAILY IF NEEDED FOR CONSTIPATION.
  6. MINERAL OIL\PETROLATUM\WAX, EMULSIFYING [Concomitant]
     Active Substance: MINERAL OIL\PETROLATUM\WAX, EMULSIFYING
     Indication: Product used for unknown indication
     Dosage: APPLY 2-3 TIMES DAILY AS NEEDED
  7. LACTULOSE [Concomitant]
     Active Substance: LACTULOSE
     Indication: Constipation
     Dosage: TWICE A DAY AS NEEDED FOR CONSTIPATION
  8. LIDOCAINE [Concomitant]
     Active Substance: LIDOCAINE
     Indication: Product used for unknown indication
     Dosage: LIDOCAINE 5% / HYDROCORTISONE ACETATE 0.275% OINTMENT
  9. HYDROCORTISONE [Concomitant]
     Active Substance: HYDROCORTISONE
     Indication: Product used for unknown indication
     Dosage: LIDOCAINE 5% / HYDROCORTISONE ACETATE 0.275% OINTMENT
  10. ACETAMINOPHEN [Concomitant]
     Active Substance: ACETAMINOPHEN
     Indication: Product used for unknown indication
     Dosage: TWO TO BE TAKEN EVERY 6 HOURS/FOUR TIMES A DAY IF NEEDED
  11. PREDNISOLONE [Concomitant]
     Active Substance: PREDNISOLONE
     Indication: Product used for unknown indication
     Dosage: 8 TABLETS IN THE MORNING FOR 5 DAYS
  12. ALBUTEROL [Concomitant]
     Active Substance: ALBUTEROL
     Indication: Product used for unknown indication
  13. SODIUM ALGINATE [Concomitant]
     Active Substance: SODIUM ALGINATE
     Indication: Product used for unknown indication
     Dosage: SODIUM ALGINATE 500MG / POTASSIUM BICARBONATE 100MG. 1/2 TO BE CHEWED AFTER MEALS AND AT BEDTIME.
  14. POTASSIUM BICARBONATE [Concomitant]
     Active Substance: POTASSIUM BICARBONATE
     Indication: Product used for unknown indication
     Dosage: SODIUM ALGINATE 500MG / POTASSIUM BICARBONATE 100MG. 1/2 TO BE CHEWED AFTER MEALS AND AT BEDTIME.
  15. TRELEGY ELLIPTA [Concomitant]
     Active Substance: FLUTICASONE FUROATE\UMECLIDINIUM BROMIDE\VILANTEROL TRIFENATATE
     Indication: Product used for unknown indication
     Dosage: TRELEGY ELLIPTA 92MICROGRAMS// 55MICROGRAMS/DOSE / 22MICROGRAMS/DOSE DRY POWDER INHALER.
     Route: 055
  16. WARFARIN [Concomitant]
     Active Substance: WARFARIN
     Indication: Product used for unknown indication
     Dosage: TAKE AS PRESCRIBED IN ANTICOAGULANT TREATMENT BOOK.
  17. VENTOLIN [Concomitant]
     Active Substance: ALBUTEROL SULFATE
     Indication: Product used for unknown indication
     Dosage: VENTOLIN 100MICROGRAMS/DOSE EVOHALER (GLAXOSMITHKLINE UK LTD), INHALE 2 DOSES AS NEEDED
     Route: 055

REACTIONS (1)
  - Osteoporosis [Unknown]
